FAERS Safety Report 6060924-9 (Version None)
Quarter: 2009Q1

REPORT INFORMATION
  Report Type: 
  Country: None (occurrence: None)
  Receive Date: 20090130
  Receipt Date: 20090130
  Transmission Date: 20090719
  Serious: No
  Sender: FDA-Public Use
  Company Number: None

PATIENT
  Age: 60 Year
  Sex: Male

DRUGS (2)
  1. MIDAZOLAM HCL [Suspect]
     Indication: SEDATION
     Dosage: 1 MG ONCE IV
     Route: 042
     Dates: start: 20081205, end: 20081205
  2. FENTANYL [Suspect]
     Indication: SEDATION
     Dosage: 25 MCG ONCE IV
     Route: 042
     Dates: start: 20081205, end: 20081205

REACTIONS (9)
  - AGITATION [None]
  - CONFUSIONAL STATE [None]
  - CONVULSION [None]
  - DISORIENTATION [None]
  - HYPERTENSION [None]
  - HYPOAESTHESIA [None]
  - MUSCULAR WEAKNESS [None]
  - PROCEDURAL COMPLICATION [None]
  - TACHYCARDIA [None]
